FAERS Safety Report 4931667-7 (Version None)
Quarter: 2006Q1

REPORT INFORMATION
  Report Type: 
  Country: None (occurrence: None)
  Receive Date: 20060303
  Receipt Date: 20051223
  Transmission Date: 20060701
  Serious: No
  Sender: FDA-Public Use
  Company Number: US-BRISTOL-MYERS SQUIBB COMPANY-13228333

PATIENT
  Age: 4 Decade
  Sex: Male
  Weight: 97 kg

DRUGS (6)
  1. ERBITUX [Suspect]
     Indication: COLON CANCER METASTATIC
     Route: 042
     Dates: start: 20051201, end: 20051201
  2. AVASTIN [Concomitant]
  3. TYLENOL (CAPLET) [Concomitant]
     Indication: PREMEDICATION
     Route: 048
     Dates: start: 20051201, end: 20051201
  4. BENADRYL [Concomitant]
     Indication: PREMEDICATION
     Route: 042
     Dates: start: 20051201, end: 20051201
  5. DECADRON SRC [Concomitant]
     Indication: PREMEDICATION
     Route: 042
     Dates: start: 20051201, end: 20051201
  6. PEPCID [Concomitant]
     Indication: PREMEDICATION
     Route: 042
     Dates: start: 20051201, end: 20051201

REACTIONS (1)
  - RASH GENERALISED [None]
